FAERS Safety Report 6985643-3 (Version None)
Quarter: 2010Q3

REPORT INFORMATION
  Report Type: 
  Country: None (occurrence: None)
  Receive Date: 20100915
  Receipt Date: 20100906
  Transmission Date: 20110219
  Serious: Yes (Other)
  Sender: FDA-Public Use
  Company Number: GXKR2010DE10114

PATIENT
  Age: 7 Year
  Sex: Female

DRUGS (7)
  1. METHYLPREDNISOLONE 4MG TAB [Suspect]
     Indication: JUVENILE ARTHRITIS
     Dosage: PULSES
     Route: 065
  2. PREDNISONE (NGX) [Suspect]
     Indication: JUVENILE ARTHRITIS
     Dosage: 40 MG/DAY
     Route: 048
  3. NSAID'S [Concomitant]
     Indication: JUVENILE ARTHRITIS
  4. ETANERCEPT [Concomitant]
     Indication: JUVENILE ARTHRITIS
  5. ANAKINRA [Concomitant]
     Indication: JUVENILE ARTHRITIS
  6. CYCLOSPORINE [Concomitant]
     Indication: JUVENILE ARTHRITIS
  7. ETOPOSIDE [Concomitant]
     Indication: JUVENILE ARTHRITIS

REACTIONS (2)
  - BACK PAIN [None]
  - EPIDURAL LIPOMATOSIS [None]
